FAERS Safety Report 8950931 (Version 1)
Quarter: 2012Q4

REPORT INFORMATION
  Report Type: Spontaneous
  Country: US (occurrence: None)
  Receive Date: 20121130
  Receipt Date: 20121130
  Transmission Date: 20130627
  Serious: Yes (Other)
  Sender: FDA-Public Use
  Company Number: None

PATIENT
  Age: 83 Year
  Sex: Female
  Weight: 66 kg

DRUGS (19)
  1. MORPHINE [Suspect]
     Indication: CHRONIC PAIN
     Dosage: 30  mg   bid   po
unknown on prior to admit --
     Route: 048
  2. ACYCLOVIR [Concomitant]
  3. ALBUTEROL/IPRATROPIUM NEB [Concomitant]
  4. AMIODARONE [Concomitant]
  5. AMLODIPINE [Concomitant]
  6. ASPIRIN [Concomitant]
  7. CALCIUM + VITAMIN D [Concomitant]
  8. CLINDAMYCIN [Concomitant]
  9. DULOXETINE [Concomitant]
  10. ENOXAPARIN [Concomitant]
  11. FLUTICASONE/SALMETEROL [Concomitant]
  12. GLIPIZIDE [Concomitant]
  13. HYDRALAZINE [Concomitant]
  14. TRIAMCINOLONE CREAM [Concomitant]
  15. ASPART INSULIN SLIDING SCALE [Concomitant]
  16. LEVOFLOXACIN [Concomitant]
  17. LIDOCAINE PATCH [Concomitant]
  18. LORATADINE [Concomitant]
  19. PANTOPRAZOLE [Concomitant]

REACTIONS (6)
  - Spinal compression fracture [None]
  - Respiratory depression [None]
  - Mental status changes [None]
  - Renal failure acute [None]
  - Pneumonia aspiration [None]
  - Lethargy [None]
